FAERS Safety Report 10454446 (Version 1)
Quarter: 2014Q3

REPORT INFORMATION
  Report Type: Spontaneous
  Country: US (occurrence: US)
  Receive Date: 20140915
  Receipt Date: 20140915
  Transmission Date: 20150326
  Serious: No
  Sender: FDA-Public Use
  Company Number: US-GILEAD-2014-0115089

PATIENT
  Age: 57 Year
  Sex: Male

DRUGS (4)
  1. WARFARIN [Concomitant]
     Active Substance: WARFARIN
  2. VELETRI [Concomitant]
     Active Substance: EPOPROSTENOL
  3. FLOLAN [Concomitant]
     Active Substance: EPOPROSTENOL SODIUM
  4. LETAIRIS [Suspect]
     Active Substance: AMBRISENTAN
     Indication: PRODUCT USED FOR UNKNOWN INDICATION
     Route: 065
     Dates: start: 20140701

REACTIONS (1)
  - Headache [Recovered/Resolved]
